FAERS Safety Report 4965658-7 (Version None)
Quarter: 2006Q1

REPORT INFORMATION
  Report Type: 
  Country: None (occurrence: None)
  Receive Date: 20060201
  Receipt Date: 20051115
  Transmission Date: 20060701
  Serious: No
  Sender: FDA-Public Use
  Company Number: 2005PV005159

PATIENT
  Age: 57 Year
  Sex: Female
  Weight: 108.8633 kg

DRUGS (4)
  1. BYETTA [Suspect]
     Indication: DIABETES MELLITUS NON-INSULIN-DEPENDENT
     Dosage: 5 MCG; BID; SC
     Route: 058
     Dates: start: 20051028
  2. LANTUS [Concomitant]
  3. METFORMIN [Concomitant]
  4. AMARYL [Concomitant]

REACTIONS (5)
  - CHILLS [None]
  - HEADACHE [None]
  - HYPERHIDROSIS [None]
  - NAUSEA [None]
  - WEIGHT DECREASED [None]
